FAERS Safety Report 23864789 (Version 2)
Quarter: 2024Q2

REPORT INFORMATION
  Report Type: Spontaneous
  Country: US (occurrence: US)
  Receive Date: 20240516
  Receipt Date: 20240612
  Transmission Date: 20240716
  Serious: No
  Sender: FDA-Public Use
  Company Number: US-009507513-2401USA006578

PATIENT
  Sex: Female

DRUGS (1)
  1. KEYTRUDA [Suspect]
     Active Substance: PEMBROLIZUMAB
     Indication: Breast cancer female
     Dosage: UNK

REACTIONS (4)
  - Product dose omission issue [Unknown]
  - Insurance issue [Unknown]
  - Off label use [Unknown]
  - No adverse event [Unknown]
